FAERS Safety Report 7436357-7 (Version None)
Quarter: 2011Q2

REPORT INFORMATION
  Report Type: 
  Country: None (occurrence: None)
  Receive Date: 20110426
  Receipt Date: 20110415
  Transmission Date: 20111010
  Serious: No
  Sender: FDA-Public Use
  Company Number: US-BIOGENIDEC-2010BI041002

PATIENT
  Sex: Female

DRUGS (2)
  1. TYSABRI [Suspect]
     Indication: MULTIPLE SCLEROSIS
     Route: 042
     Dates: start: 20090226
  2. TYSABRI [Suspect]
     Route: 042
     Dates: start: 20050501, end: 20050701

REACTIONS (19)
  - GAIT DISTURBANCE [None]
  - MIGRAINE [None]
  - FATIGUE [None]
  - NASOPHARYNGITIS [None]
  - COGNITIVE DISORDER [None]
  - HYPOAESTHESIA [None]
  - ANGER [None]
  - ADVERSE DRUG REACTION [None]
  - TACHYPHRENIA [None]
  - CEREBRAL ATROPHY [None]
  - COORDINATION ABNORMAL [None]
  - FEELING HOT [None]
  - PARAESTHESIA [None]
  - FRUSTRATION [None]
  - PARANOIA [None]
  - ASTHENIA [None]
  - ANXIETY [None]
  - MULTIPLE SCLEROSIS [None]
  - BRONCHITIS [None]
